FAERS Safety Report 5444460-6 (Version None)
Quarter: 2007Q3

REPORT INFORMATION
  Report Type: 
  Country: None (occurrence: None)
  Receive Date: 20070824
  Receipt Date: 20070821
  Transmission Date: 20080115
  Serious: Yes (Hospitalization)
  Sender: FDA-Public Use
  Company Number: A0427399A

PATIENT
  Age: 61 Year
  Sex: Female
  Weight: 95.1193 kg

DRUGS (1)
  1. LOTRONEX [Suspect]
     Indication: IRRITABLE BOWEL SYNDROME
     Dosage: 5 MG/ PER DAY / ORAL
     Route: 048
     Dates: start: 20030912, end: 20030922

REACTIONS (2)
  - COLONIC STENOSIS [None]
  - SMALL INTESTINAL OBSTRUCTION [None]
